FAERS Safety Report 6768337-9 (Version None)
Quarter: 2010Q2

REPORT INFORMATION
  Report Type: 
  Country: None (occurrence: None)
  Receive Date: 20100614
  Receipt Date: 20100604
  Transmission Date: 20101027
  Serious: Yes (Death, Hospitalization, Other)
  Sender: FDA-Public Use
  Company Number: ES-BRISTOL-MYERS SQUIBB COMPANY-15129695

PATIENT
  Age: 64 Year
  Sex: Male

DRUGS (6)
  1. ORENCIA [Suspect]
     Indication: RHEUMATOID ARTHRITIS
     Dates: start: 20100528
  2. VALTREX [Suspect]
  3. DACORTIN [Suspect]
  4. ITRACONAZOLE [Suspect]
  5. SEPTRIN [Suspect]
  6. HUMIRA [Concomitant]

REACTIONS (6)
  - ANAEMIA [None]
  - DYSPNOEA [None]
  - PULMONARY SEPSIS [None]
  - PYREXIA [None]
  - RENAL FAILURE [None]
  - SHOCK [None]
